FAERS Safety Report 7104093-2 (Version None)
Quarter: 2010Q4

REPORT INFORMATION
  Report Type: 
  Country: None (occurrence: None)
  Receive Date: 20101115
  Receipt Date: 20100528
  Transmission Date: 20110411
  Serious: Yes (Other)
  Sender: FDA-Public Use
  Company Number: US-ALLERGAN-1006754US

PATIENT
  Age: 48 Year
  Sex: Male

DRUGS (2)
  1. BOTOXA? [Suspect]
     Indication: TORTICOLLIS
     Dosage: 125 UNITS, SINGLE
     Route: 030
     Dates: start: 20100212, end: 20100212
  2. COUMADIN [Concomitant]
     Indication: PRODUCT USED FOR UNKNOWN INDICATION
     Dosage: UNK
     Dates: start: 20090101

REACTIONS (1)
  - DYSPHAGIA [None]
